FAERS Safety Report 7233743-5 (Version None)
Quarter: 2011Q1

REPORT INFORMATION
  Report Type: 
  Country: None (occurrence: None)
  Receive Date: 20110119
  Receipt Date: 20110107
  Transmission Date: 20110831
  Serious: No
  Sender: FDA-Public Use
  Company Number: US-PFIZER INC-2011005943

PATIENT
  Age: 57 Year
  Sex: Female
  Weight: 63.492 kg

DRUGS (1)
  1. ADVIL CONGESTION RELIEF [Suspect]
     Dosage: 1 TABLET, 3X/DAY
     Route: 048
     Dates: start: 20110101, end: 20110106

REACTIONS (1)
  - DRUG INEFFECTIVE [None]
